FAERS Safety Report 11692027 (Version 2)
Quarter: 2015Q4

REPORT INFORMATION
  Report Type: Report from Study
  Country: BE (occurrence: BE)
  Receive Date: 20151103
  Receipt Date: 20151105
  Transmission Date: 20160304
  Serious: Yes (Hospitalization)
  Sender: FDA-Public Use
  Company Number: BE-BEH-2015055273

PATIENT
  Age: 10 Month
  Sex: Male

DRUGS (5)
  1. FLIXOTIDE [Concomitant]
     Active Substance: FLUTICASONE PROPIONATE
     Dosage: 2X2 PUFFS/DAY
  2. HIZENTRA [Suspect]
     Active Substance: HUMAN IMMUNOGLOBULIN G
     Indication: PRODUCT USED FOR UNKNOWN INDICATION
     Route: 058
     Dates: start: 20151019
  3. HIZENTRA [Suspect]
     Active Substance: HUMAN IMMUNOGLOBULIN G
     Route: 058
     Dates: start: 20151012
  4. TOBREX EYE OINTMENT [Concomitant]
     Dosage: 3.5GR 3 MG/MG X 1/D
  5. ATROPINE EYE DROPS [Concomitant]
     Dosage: 0.5% X 1/D

REACTIONS (3)
  - Viral infection [Recovered/Resolved]
  - Pyrexia [Recovered/Resolved]
  - Hypophagia [Recovered/Resolved]

NARRATIVE: CASE EVENT DATE: 20151022
